FAERS Safety Report 4633300-0 (Version None)
Quarter: 2005Q2

REPORT INFORMATION
  Report Type: 
  Country: None (occurrence: None)
  Receive Date: 20050408
  Receipt Date: 20050331
  Transmission Date: 20051028
  Serious: Yes (Hospitalization)
  Sender: FDA-Public Use
  Company Number: 213170

PATIENT
  Age: 33 Year
  Sex: Female
  Weight: 61.2 kg

DRUGS (3)
  1. RAPTIVA [Suspect]
     Indication: PSORIASIS
     Dosage: 0.6 ML, 1/WEEK, SUBCUTANEOUS
     Route: 058
     Dates: start: 20040308, end: 20050315
  2. DIET PILL [Concomitant]
  3. DIURETIC NOS [Concomitant]

REACTIONS (2)
  - GRAND MAL CONVULSION [None]
  - WEIGHT DECREASED [None]
